FAERS Safety Report 9924785 (Version 2)
Quarter: 2014Q1

REPORT INFORMATION
  Report Type: Spontaneous
  Country: DE (occurrence: DE)
  Receive Date: 20140226
  Receipt Date: 20140226
  Transmission Date: 20141002
  Serious: Yes (Hospitalization, Other)
  Sender: FDA-Public Use
  Company Number: DE-UCBSA-112481

PATIENT
  Age: 27 Year
  Sex: Female
  Weight: 55 kg

DRUGS (3)
  1. CIMZIA [Suspect]
     Indication: RHEUMATOID ARTHRITIS
     Dates: start: 20130109, end: 201310
  2. CIMZIA [Suspect]
     Indication: RHEUMATOID ARTHRITIS
     Dates: end: 20140129
  3. IBUPROFEN [Concomitant]
     Indication: ARTHRALGIA

REACTIONS (2)
  - Multiple sclerosis [Not Recovered/Not Resolved]
  - Neurodermatitis [Unknown]
